FAERS Safety Report 15850464 (Version 1)
Quarter: 2019Q1

REPORT INFORMATION
  Report Type: Spontaneous
  Country: AU (occurrence: AU)
  Receive Date: 20190121
  Receipt Date: 20190121
  Transmission Date: 20190417
  Serious: Yes (Other)
  Sender: FDA-Public Use
  Company Number: AU-BAUSCH-2012P1067308

PATIENT
  Age: 49 Year
  Sex: Female

DRUGS (1)
  1. MINOCYCLINE [Suspect]
     Active Substance: MINOCYCLINE\MINOCYCLINE HYDROCHLORIDE
     Indication: ROSACEA
     Route: 065

REACTIONS (1)
  - Acute febrile neutrophilic dermatosis [Recovered/Resolved]

NARRATIVE: CASE EVENT DATE: 2012
